FAERS Safety Report 20852409 (Version 3)
Quarter: 2022Q4

REPORT INFORMATION
  Report Type: Report from Study
  Country: GB (occurrence: GB)
  Receive Date: 20220520
  Receipt Date: 20221118
  Transmission Date: 20230113
  Serious: Yes (Hospitalization, Other)
  Sender: FDA-Public Use
  Company Number: GB-NOVARTISPH-NVSC2021GB262160

PATIENT
  Sex: Female

DRUGS (1)
  1. MAYZENT [Suspect]
     Active Substance: SIPONIMOD
     Indication: Multiple sclerosis
     Dosage: UNK
     Route: 048
     Dates: start: 20211115

REACTIONS (11)
  - Urinary tract infection [Unknown]
  - Diplopia [Not Recovered/Not Resolved]
  - Balance disorder [Unknown]
  - Tremor [Unknown]
  - Contusion [Unknown]
  - Fall [Unknown]
  - Seizure [Unknown]
  - Anxiety [Unknown]
  - Joint swelling [Unknown]
  - Amnesia [Unknown]
  - Visual impairment [Unknown]

NARRATIVE: CASE EVENT DATE: 20220801
